FAERS Safety Report 5907620-3 (Version None)
Quarter: 2008Q4

REPORT INFORMATION
  Report Type: 
  Country: None (occurrence: None)
  Receive Date: 20081003
  Receipt Date: 20080922
  Transmission Date: 20090506
  Serious: Yes (Hospitalization)
  Sender: FDA-Public Use
  Company Number: US-PFIZER INC-2008081488

PATIENT
  Age: 8 Year
  Sex: Male

DRUGS (3)
  1. PREDNISONE [Suspect]
     Indication: SARCOIDOSIS
     Dosage: DAILY DOSE:1MG/KG
  2. METHYLPREDNISOLONE ACETATE [Suspect]
     Indication: LYMPHADENOPATHY
     Dosage: DAILY DOSE:10MG/KG
     Route: 042
  3. METHYLPREDNISOLONE ACETATE [Suspect]
     Indication: PLEURAL EFFUSION
     Dosage: DAILY DOSE:5MG/KG
     Route: 042

REACTIONS (2)
  - BONE MARROW ISCHAEMIA [None]
  - LEUKOCYTOSIS [None]
